FAERS Safety Report 5558309-4 (Version None)
Quarter: 2007Q4

REPORT INFORMATION
  Report Type: 
  Country: None (occurrence: None)
  Receive Date: 20071214
  Receipt Date: 20071203
  Transmission Date: 20080405
  Serious: Yes (Other)
  Sender: FDA-Public Use
  Company Number: NZ-PFIZER INC-2007101453

PATIENT
  Age: 67 Year
  Sex: Female

DRUGS (4)
  1. METRONIDAZOLE TABLET [Suspect]
     Indication: PNEUMATOSIS INTESTINALIS
  2. DOXYCYCLINE [Concomitant]
     Indication: PNEUMATOSIS INTESTINALIS
  3. ROXITHROMYCIN [Concomitant]
     Indication: PNEUMATOSIS INTESTINALIS
  4. AUGMENTIN '250' [Concomitant]
     Indication: PNEUMATOSIS INTESTINALIS

REACTIONS (1)
  - OPTIC NEUROPATHY [None]
